FAERS Safety Report 15402164 (Version 1)
Quarter: 2018Q3

REPORT INFORMATION
  Report Type: Spontaneous
  Country: US (occurrence: US)
  Receive Date: 20180915
  Receipt Date: 20180915
  Transmission Date: 20181010
  Serious: Yes (Life-Threatening, Hospitalization, Disabling, Other)
  Sender: FDA-Public Use
  Company Number: None

PATIENT
  Age: 79 Year
  Sex: Female

DRUGS (3)
  1. OCUVITE [Concomitant]
     Active Substance: VITAMINS
  2. LOSARTAN. [Concomitant]
     Active Substance: LOSARTAN
  3. LISINOPRIL. [Suspect]
     Active Substance: LISINOPRIL
     Indication: HYPERTENSION

REACTIONS (2)
  - Pancreatitis [None]
  - Asthenia [None]

NARRATIVE: CASE EVENT DATE: 20140924
